FAERS Safety Report 10693191 (Version 1)
Quarter: 2015Q1

REPORT INFORMATION
  Report Type: Report from Study
  Country: US (occurrence: US)
  Receive Date: 20150106
  Receipt Date: 20150106
  Transmission Date: 20150720
  Serious: Yes (Hospitalization)
  Sender: FDA-Public Use
  Company Number: US-ROCHE-1516808

PATIENT
  Age: 64 Year
  Sex: Female
  Weight: 75.1 kg

DRUGS (6)
  1. TRASTUZUMAB [Suspect]
     Active Substance: TRASTUZUMAB
     Dosage: 30-60 MIN ON DAY 1 (PLANNED FOR CYCLE 2-6), LAST DOSE RECEIVED ON 09/JUL/2014 (CYCLE 2), RECEIVED 2
     Route: 042
     Dates: start: 20140709
  2. CARBOPLATIN. [Suspect]
     Active Substance: CARBOPLATIN
     Indication: BREAST CANCER
     Dosage: AUC= 6 MG/ML/MIN, OVER 30-60 MIN ON DAY 1 (PLANNED FOR CYCLE 1-6), LAST DOSE RECEIVED ON 09/JUL/2014
     Route: 042
     Dates: start: 20140618
  3. PERTUZUMAB [Suspect]
     Active Substance: PERTUZUMAB
     Dosage: 30-60 MIN ON DAY 1 (PLANNED FOR CYCLE 2-6), LAST DOSE RECEIVED ON 09/JUL/2014, RECEIVED 2 CYCLES.
     Route: 042
     Dates: start: 20140709
  4. PERTUZUMAB [Suspect]
     Active Substance: PERTUZUMAB
     Indication: BREAST CANCER
     Dosage: OVER 60 MIN, DAY 1, CYCLE 1
     Route: 042
     Dates: start: 20140618
  5. TRASTUZUMAB [Suspect]
     Active Substance: TRASTUZUMAB
     Indication: BREAST CANCER
     Dosage: 90 MIN ON DAY 1 OF CYCLE 1
     Route: 042
     Dates: start: 20140618
  6. DOCETAXEL. [Suspect]
     Active Substance: DOCETAXEL
     Indication: BREAST CANCER
     Dosage: OVER 60 MIN ON DAY 1 (PLANNED FOR CYCLE1-6), LAST DOSE RECEIVED ON 09/JUL/2014 (CYCLE 2), RECEIVED 2
     Route: 042
     Dates: start: 20140618

REACTIONS (2)
  - Acute kidney injury [Recovering/Resolving]
  - Sepsis [Recovering/Resolving]

NARRATIVE: CASE EVENT DATE: 20140714
